FAERS Safety Report 7630850-X (Version None)
Quarter: 2011Q3

REPORT INFORMATION
  Report Type: 
  Country: None (occurrence: None)
  Receive Date: 20110723
  Receipt Date: 20110719
  Transmission Date: 20111222
  Serious: Yes (Death)
  Sender: FDA-Public Use
  Company Number: ZW-ABBOTT-11P-190-0840250-00

PATIENT
  Age: 33 Year
  Sex: Female
  Weight: 45 kg

DRUGS (5)
  1. NEVIRAPINE [Concomitant]
     Indication: ANTIRETROVIRAL THERAPY
     Dates: start: 20051101
  2. KALETRA [Suspect]
     Indication: HIV INFECTION
     Dosage: 400/100 MG
     Route: 048
     Dates: start: 20110615, end: 20110618
  3. STAVUDINE [Concomitant]
     Indication: ANTIRETROVIRAL THERAPY
     Dates: start: 20051101
  4. LAMIVUDINE [Concomitant]
     Indication: ANTIRETROVIRAL THERAPY
     Dates: start: 20051101
  5. EMTRICITABINE W/TENOFOVIR [Concomitant]
     Indication: HIV INFECTION
     Dosage: 200/300 MG
     Route: 048
     Dates: start: 20110615, end: 20110618

REACTIONS (1)
  - RESPIRATORY DISTRESS [None]
